FAERS Safety Report 4545838-5 (Version None)
Quarter: 2005Q1

REPORT INFORMATION
  Report Type: 
  Country: None (occurrence: None)
  Receive Date: 20050103
  Receipt Date: 20041216
  Transmission Date: 20050727
  Serious: Yes (Hospitalization)
  Sender: FDA-Public Use
  Company Number: 207863

PATIENT
  Age: 52 Year
  Sex: Female

DRUGS (9)
  1. AVONEX [Suspect]
     Indication: MULTIPLE SCLEROSIS
     Dosage: 30 UG; QW; IM
     Route: 030
     Dates: start: 20030504
  2. DESYREL [Concomitant]
  3. PAXIL [Concomitant]
  4. AVAPRO [Concomitant]
  5. DILTIAZEM [Concomitant]
  6. GEMFIBROZIL [Concomitant]
  7. GLUCOPHAGE [Concomitant]
  8. INSULIN [Concomitant]
  9. NEXIUM [Concomitant]

REACTIONS (2)
  - FACIAL PALSY [None]
  - HYPOAESTHESIA [None]
